FAERS Safety Report 10584861 (Version 6)
Quarter: 2015Q3

REPORT INFORMATION
  Report Type: Report from Study
  Country: US (occurrence: US)
  Receive Date: 20141114
  Receipt Date: 20150901
  Transmission Date: 20151125
  Serious: Yes (Other)
  Sender: FDA-Public Use
  Company Number: US-SA-2014SA098604

PATIENT
  Age: 49 Year
  Sex: Female

DRUGS (5)
  1. AUBAGIO [Suspect]
     Active Substance: TERIFLUNOMIDE
     Indication: MULTIPLE SCLEROSIS
     Route: 048
     Dates: start: 20140525, end: 20141104
  2. CLONAZEPAM. [Concomitant]
     Active Substance: CLONAZEPAM
  3. AUBAGIO [Suspect]
     Active Substance: TERIFLUNOMIDE
     Indication: MULTIPLE SCLEROSIS
     Route: 048
     Dates: start: 20141121, end: 20150101
  4. AUBAGIO [Suspect]
     Active Substance: TERIFLUNOMIDE
     Indication: MULTIPLE SCLEROSIS
     Route: 048
     Dates: start: 20150303
  5. COPAXONE [Concomitant]
     Active Substance: GLATIRAMER ACETATE
     Dates: start: 201102, end: 20140601

REACTIONS (11)
  - Anxiety [Unknown]
  - Fatigue [Unknown]
  - Abdominal tenderness [Recovering/Resolving]
  - Depression [Unknown]
  - Memory impairment [Unknown]
  - Musculoskeletal stiffness [Recovering/Resolving]
  - Multiple sclerosis relapse [Unknown]
  - Loss of control of legs [Recovered/Resolved]
  - Gastrooesophageal reflux disease [Recovering/Resolving]
  - Suicidal ideation [Recovered/Resolved]
  - Oropharyngeal pain [Unknown]

NARRATIVE: CASE EVENT DATE: 2014
